FAERS Safety Report 11171814 (Version 1)
Quarter: 2015Q2

REPORT INFORMATION
  Report Type: Spontaneous
  Country: JP (occurrence: JP)
  Receive Date: 20150608
  Receipt Date: 20150608
  Transmission Date: 20150821
  Serious: Yes (Hospitalization, Other)
  Sender: FDA-Public Use
  Company Number: JP-BANPHARM-20153949

PATIENT
  Age: 36 Year
  Sex: Female

DRUGS (1)
  1. IBUPROFEN UNKNOWN PRODUCT [Suspect]
     Active Substance: IBUPROFEN
     Indication: HEADACHE
     Dosage: 4 DF, QD,

REACTIONS (5)
  - Abdominal pain upper [Unknown]
  - Erythema multiforme [Recovered/Resolved]
  - Chromaturia [Recovered/Resolved]
  - Pyrexia [Recovered/Resolved]
  - Drug-induced liver injury [Recovered/Resolved]
